FAERS Safety Report 4535702-X (Version None)
Quarter: 2004Q4

REPORT INFORMATION
  Report Type: 
  Country: None (occurrence: None)
  Receive Date: 20041223
  Receipt Date: 20031210
  Transmission Date: 20050328
  Serious: No
  Sender: FDA-Public Use
  Company Number: US-GLAXOSMITHKLINE-A0442645A

PATIENT
  Age: 42 Year
  Sex: Male

DRUGS (3)
  1. FLONASE [Suspect]
     Indication: RHINITIS
     Dosage: 2PUFF TWICE PER DAY
     Route: 045
     Dates: start: 20031205
  2. AVELOX [Concomitant]
  3. ZYRTEC [Concomitant]

REACTIONS (1)
  - FATIGUE [None]
